FAERS Safety Report 9079476 (Version 1)
Quarter: 2013Q1

REPORT INFORMATION
  Report Type: Spontaneous
  Country: US (occurrence: US)
  Receive Date: 20130130
  Receipt Date: 20130130
  Transmission Date: 20140127
  Serious: Yes (Other)
  Sender: FDA-Public Use
  Company Number: US-009507513-1301USA004189

PATIENT
  Sex: Female

DRUGS (14)
  1. SINGULAIR [Suspect]
     Indication: ASTHMA
  2. ECHINACEA (UNSPECIFIED) [Concomitant]
  3. VITAMIN E [Concomitant]
  4. OMEGA-3 MARINE TRIGLYCERIDES [Concomitant]
  5. PROVENTIL INHALER [Concomitant]
  6. ADVAIR [Concomitant]
     Dosage: 100/50
  7. POTASSIUM CHLORIDE [Concomitant]
  8. CYMBALTA [Concomitant]
  9. VYTORIN [Concomitant]
  10. TOPAMAX [Concomitant]
  11. ACIPHEX [Concomitant]
  12. ATENOLOL [Concomitant]
  13. LYRICA [Suspect]
  14. LEVAQUIN [Suspect]

REACTIONS (8)
  - Nausea [Unknown]
  - Oxygen saturation decreased [Unknown]
  - Oedema peripheral [Unknown]
  - Fibromyalgia [Unknown]
  - Dyspnoea [Unknown]
  - Dizziness [Unknown]
  - Chest pain [Unknown]
  - Asthenia [Unknown]
